FAERS Safety Report 7340767-6 (Version None)
Quarter: 2011Q1

REPORT INFORMATION
  Report Type: 
  Country: None (occurrence: None)
  Receive Date: 20110309
  Receipt Date: 20110210
  Transmission Date: 20110831
  Serious: Yes (Other)
  Sender: FDA-Public Use
  Company Number: JP-ROCHE-763882

PATIENT
  Sex: Male
  Weight: 3.2 kg

DRUGS (1)
  1. OSELTAMIVIR [Suspect]
     Indication: INFLUENZA
     Route: 064
     Dates: start: 20091210, end: 20091214

REACTIONS (3)
  - DRUG EXPOSURE DURING PREGNANCY [None]
  - DACRYOSTENOSIS CONGENITAL [None]
  - NORMAL NEWBORN [None]
